FAERS Safety Report 25932942 (Version 1)
Quarter: 2025Q4

REPORT INFORMATION
  Report Type: Other
  Country: TW (occurrence: TW)
  Receive Date: 20251017
  Receipt Date: 20251017
  Transmission Date: 20260118
  Serious: Yes (Death, Hospitalization)
  Sender: ANI
  Company Number: TW-ANIPHARMA-030931

PATIENT
  Age: 71 Year
  Sex: Female

DRUGS (4)
  1. CLOPIDOGREL [Suspect]
     Active Substance: CLOPIDOGREL BISULFATE
     Indication: Acute myocardial infarction
     Dosage: DUAL ANTIPLATELET THERAPY
  2. ASPIRIN [Concomitant]
     Active Substance: ASPIRIN
     Indication: Thrombosis prophylaxis
  3. CILOSTAZOL [Concomitant]
     Active Substance: CILOSTAZOL
     Indication: Acute myocardial infarction
  4. ASPIRIN [Concomitant]
     Active Substance: ASPIRIN
     Indication: Acute myocardial infarction
     Dosage: DUAL ANTIPLATELET THERAPY

REACTIONS (1)
  - Drug ineffective [Fatal]
